FAERS Safety Report 26213184 (Version 1)
Quarter: 2025Q4

REPORT INFORMATION
  Report Type: Spontaneous
  Country: US (occurrence: US)
  Receive Date: 20251230
  Receipt Date: 20251230
  Transmission Date: 20260118
  Serious: Yes (Other)
  Sender: BLUEPRINT MEDICINES
  Company Number: US-Blueprint Medicines Corporation-2025-AER-02798

PATIENT
  Age: 58 Year
  Sex: Female

DRUGS (1)
  1. AYVAKIT [Suspect]
     Active Substance: AVAPRITINIB
     Indication: Malignant melanoma
     Route: 065
     Dates: start: 20251205

REACTIONS (5)
  - Haemoglobin decreased [Unknown]
  - Swelling face [Unknown]
  - Taste disorder [Unknown]
  - Decreased appetite [Unknown]
  - Oedema peripheral [Unknown]
